FAERS Safety Report 22266208 (Version 2)
Quarter: 2023Q2

REPORT INFORMATION
  Report Type: Spontaneous
  Country: JP (occurrence: JP)
  Receive Date: 20230428
  Receipt Date: 20230602
  Transmission Date: 20230721
  Serious: Yes (Death, Hospitalization, Other)
  Sender: FDA-Public Use
  Company Number: JP-009507513-2304JPN009923

PATIENT
  Age: 68 Year
  Sex: Female

DRUGS (5)
  1. PEMBROLIZUMAB [Suspect]
     Active Substance: PEMBROLIZUMAB
     Indication: Non-small cell lung cancer
     Dosage: CYCLICAL (4 CYCLES)
     Route: 041
  2. PEMBROLIZUMAB [Suspect]
     Active Substance: PEMBROLIZUMAB
     Dosage: CYCLICAL (FOLLOWED 3 CYCLES OF MAINTENANCE)
     Route: 041
  3. CARBOPLATIN [Suspect]
     Active Substance: CARBOPLATIN
     Indication: Non-small cell lung cancer
     Dosage: CYCLICAL (4 CYCLES)
  4. PEMETREXED [Suspect]
     Active Substance: PEMETREXED
     Indication: Non-small cell lung cancer
     Dosage: CYCLICAL (4 CYCLES)
  5. PEMETREXED [Suspect]
     Active Substance: PEMETREXED
     Dosage: CYCLICAL (FOLLOWED 3 CYCLES OF MAINTENANCE)

REACTIONS (1)
  - Pulmonary tumour thrombotic microangiopathy [Fatal]
